FAERS Safety Report 5253360-6 (Version None)
Quarter: 2007Q1

REPORT INFORMATION
  Report Type: 
  Country: None (occurrence: None)
  Receive Date: 20070301
  Receipt Date: 20070215
  Transmission Date: 20070707
  Serious: Yes (Other)
  Sender: FDA-Public Use
  Company Number: PHEH2007US02093

PATIENT
  Age: 52 Year
  Sex: Male
  Weight: 68.027 kg

DRUGS (1)
  1. ZOMETA [Suspect]
     Dosage: 4MG 4 WEEKS
     Route: 042

REACTIONS (2)
  - BONE DISORDER [None]
  - IMPAIRED HEALING [None]
